FAERS Safety Report 5591457-1 (Version None)
Quarter: 2008Q1

REPORT INFORMATION
  Report Type: 
  Country: None (occurrence: None)
  Receive Date: 20080111
  Receipt Date: 20071223
  Transmission Date: 20080703
  Serious: Yes (Hospitalization)
  Sender: FDA-Public Use
  Company Number: ALK_00473_2007

PATIENT
  Sex: Male
  Weight: 90.7194 kg

DRUGS (5)
  1. VIVITROL [Suspect]
     Indication: ALCOHOLISM
     Dosage: 380 MG 1X/MONTH INTRAMUSCULAR
     Route: 030
     Dates: start: 20070930
  2. ERYTHROMYCIN [Suspect]
     Dosage: ORAL
     Route: 048
  3. PREDNISONE [Suspect]
     Indication: DRUG HYPERSENSITIVITY
     Dosage: ORAL
     Route: 048
  4. CYMBALTA [Concomitant]
  5. PROPRANOLOL [Concomitant]

REACTIONS (6)
  - DRUG HYPERSENSITIVITY [None]
  - DRUG INEFFECTIVE [None]
  - FEAR [None]
  - HEPATIC ENZYME INCREASED [None]
  - HEPATOMEGALY [None]
  - PANCREATITIS [None]
